FAERS Safety Report 8322998-1 (Version None)
Quarter: 2012Q2

REPORT INFORMATION
  Report Type: 
  Country: None (occurrence: None)
  Receive Date: 20120430
  Receipt Date: 20120424
  Transmission Date: 20120825
  Serious: Yes (Hospitalization, Other)
  Sender: FDA-Public Use
  Company Number: US-PFIZER INC-2012046852

PATIENT
  Sex: Male
  Weight: 78.912 kg

DRUGS (25)
  1. CHANTIX [Suspect]
     Dosage: UNK
     Dates: start: 20120101, end: 20120101
  2. DILTIAZEM [Concomitant]
     Indication: CARDIAC DISORDER
     Dosage: 120 MG, DAILY
  3. LISINOPRIL [Concomitant]
     Dosage: 2.5 MG, DAILY
  4. METOPROLOL TARTRATE [Concomitant]
     Dosage: 50 MG, 2X/DAY
  5. VITAMIN TAB [Concomitant]
     Dosage: UNK
  6. AMBIEN [Concomitant]
     Indication: SLEEP DISORDER
     Dosage: 10 MG, DAILY
  7. DILTIAZEM [Concomitant]
     Indication: ANEURYSM
  8. DOC-Q-LACE [Concomitant]
     Indication: PROPHYLAXIS
     Dosage: 100 MG, DAILY
  9. ZOLPIDEM [Concomitant]
     Dosage: 10 MG, 1X/DAY
  10. PLAVIX [Concomitant]
     Dosage: 75 MG, DAILY
  11. CHANTIX [Suspect]
     Indication: SMOKING CESSATION THERAPY
     Dosage: 0.5 MG, 1X/DAY
     Route: 048
     Dates: start: 20120101, end: 20120101
  12. TRAZODONE [Concomitant]
     Indication: SLEEP DISORDER
     Dosage: 50 MG, DAILY
  13. CITALOPRAM HYDROBROMIDE [Concomitant]
     Indication: CARDIAC DISORDER
     Dosage: 20 MG, DAILY
  14. DOC-Q-LACE [Concomitant]
     Indication: FAECES HARD
  15. FOLIC ACID [Concomitant]
     Indication: BLOOD PRESSURE ABNORMAL
     Dosage: 1 MG, DAILY
  16. CRESTOR [Concomitant]
     Indication: BLOOD CHOLESTEROL INCREASED
     Dosage: 40 MG, DAILY
  17. VITAMIN D [Concomitant]
     Dosage: 120 MG, DAILY
  18. OMEPRAZOLE [Concomitant]
     Indication: CARDIAC DISORDER
     Dosage: 20 MG, DAILY
  19. FAMOTIDINE [Concomitant]
     Dosage: 20 MG, DAILY
  20. ALBUTEROL SULFATE [Concomitant]
     Indication: EMPHYSEMA
     Dosage: 90 UG, DAILY
  21. FLOVENT [Concomitant]
     Indication: EMPHYSEMA
     Dosage: 110 UG, DAILY
  22. CITALOPRAM HYDROBROMIDE [Concomitant]
     Indication: ANEURYSM
  23. MELOXICAM [Concomitant]
     Indication: CARDIAC DISORDER
     Dosage: 7.5 MG, 1X/DAY
  24. NASACORT [Concomitant]
     Dosage: UNK, TWO SPRAYS ONCE A DAY
  25. METOPROLOL [Concomitant]
     Dosage: 50 MG, 2X/DAY

REACTIONS (6)
  - BLOOD PRESSURE FLUCTUATION [None]
  - LOSS OF CONSCIOUSNESS [None]
  - HYPOTENSION [None]
  - HYPERTENSION [None]
  - SYNCOPE [None]
  - TILT TABLE TEST [None]
